FAERS Safety Report 9055526 (Version 1)
Quarter: 2013Q1

REPORT INFORMATION
  Report Type: Report from Study
  Country: JP (occurrence: JP)
  Receive Date: 20130206
  Receipt Date: 20130206
  Transmission Date: 20140127
  Serious: Yes (Other)
  Sender: FDA-Public Use
  Company Number: JP-GLAXOSMITHKLINE-B0861355A

PATIENT
  Sex: Male

DRUGS (2)
  1. AVOLVE [Suspect]
     Indication: BENIGN PROSTATIC HYPERPLASIA
     Dosage: .5MG PER DAY
     Route: 048
     Dates: start: 20110519
  2. URIEF [Concomitant]
     Indication: BENIGN PROSTATIC HYPERPLASIA
     Dosage: 4MG TWICE PER DAY
     Route: 048
     Dates: start: 20110519

REACTIONS (1)
  - Urinary retention [Unknown]
